FAERS Safety Report 4703832-5 (Version None)
Quarter: 2005Q2

REPORT INFORMATION
  Report Type: 
  Country: None (occurrence: None)
  Receive Date: 20050630
  Receipt Date: 20050509
  Transmission Date: 20051028
  Serious: No
  Sender: FDA-Public Use
  Company Number: US-GLAXOSMITHKLINE-A0557780A

PATIENT
  Age: 57 Year
  Sex: Female

DRUGS (6)
  1. FLOVENT [Suspect]
     Indication: ASTHMA
     Dosage: 2PUFF TWICE PER DAY
     Route: 055
     Dates: start: 20050423
  2. FLOVENT [Suspect]
     Dosage: 2PUFF TWICE PER DAY
     Route: 055
     Dates: end: 20050422
  3. COZAAR [Concomitant]
  4. PRAVACHOL [Concomitant]
  5. ESTRACE [Concomitant]
  6. HYDROXYZINE HCL [Concomitant]

REACTIONS (3)
  - COUGH [None]
  - DRY THROAT [None]
  - PHARMACEUTICAL PRODUCT COMPLAINT [None]
